FAERS Safety Report 20371841 (Version 1)
Quarter: 2022Q1

REPORT INFORMATION
  Report Type: Spontaneous
  Country: US (occurrence: US)
  Receive Date: 20220124
  Receipt Date: 20220124
  Transmission Date: 20220423
  Serious: Yes (Hospitalization)
  Sender: FDA-Public Use
  Company Number: US-OTSUKA-2022_002605

PATIENT
  Age: 53 Year
  Sex: Female

DRUGS (1)
  1. ABILIFY MAINTENA [Suspect]
     Active Substance: ARIPIPRAZOLE
     Indication: Bipolar disorder
     Dosage: 300 MG, QM
     Route: 030
     Dates: start: 202104

REACTIONS (2)
  - Gastrectomy [Unknown]
  - Underdose [Unknown]

NARRATIVE: CASE EVENT DATE: 20220117
